FAERS Safety Report 14077153 (Version 2)
Quarter: 2017Q4

REPORT INFORMATION
  Report Type: Report from Study
  Country: None (occurrence: CA)
  Receive Date: 20171012
  Receipt Date: 20171027
  Transmission Date: 20180321
  Serious: Yes (Hospitalization, Other)
  Sender: FDA-Public Use
  Company Number: CA-ABBVIE-17K-028-2115744-00

PATIENT
  Sex: Female

DRUGS (3)
  1. HUMIRA [Suspect]
     Active Substance: ADALIMUMAB
     Indication: CROHN^S DISEASE
     Route: 058
     Dates: start: 20150915, end: 201709
  2. HUMIRA [Suspect]
     Active Substance: ADALIMUMAB
     Route: 058
     Dates: start: 201710, end: 201710
  3. HUMIRA [Suspect]
     Active Substance: ADALIMUMAB
     Route: 058
     Dates: start: 201710

REACTIONS (8)
  - Weight decreased [Not Recovered/Not Resolved]
  - Oesophageal ulcer [Unknown]
  - Vomiting [Not Recovered/Not Resolved]
  - Duodenal obstruction [Unknown]
  - Hypophagia [Not Recovered/Not Resolved]
  - Duodenal ulcer [Unknown]
  - Nausea [Not Recovered/Not Resolved]
  - Duodenitis [Unknown]

NARRATIVE: CASE EVENT DATE: 2017
